FAERS Safety Report 13101151 (Version 1)
Quarter: 2017Q1

REPORT INFORMATION
  Report Type: Spontaneous
  Country: CH (occurrence: ES)
  Receive Date: 20170110
  Receipt Date: 20170110
  Transmission Date: 20170428
  Serious: Yes (Hospitalization)
  Sender: FDA-Public Use
  Company Number: CH-LPDUSPRD-20161167

PATIENT
  Age: 52 Year
  Sex: Female

DRUGS (1)
  1. VENOFER [Suspect]
     Active Substance: IRON SUCROSE
     Dosage: 200 MG
     Route: 041
     Dates: start: 20161206, end: 20161206

REACTIONS (1)
  - Skin discolouration [Not Recovered/Not Resolved]

NARRATIVE: CASE EVENT DATE: 20161206
